FAERS Safety Report 9004650 (Version 1)
Quarter: 2012Q4

REPORT INFORMATION
  Report Type: Spontaneous
  Country: DK (occurrence: None)
  Receive Date: 20121227
  Receipt Date: 20121227
  Transmission Date: 20130627
  Serious: Yes (Other)
  Sender: FDA-Public Use
  Company Number: AUR-APL-2012-05577

PATIENT
  Age: 84 Year
  Sex: Male

DRUGS (2)
  1. METFORMIN [Suspect]
  2. SALAZOPYRIN [Suspect]

REACTIONS (1)
  - Diabetic neuropathy [None]
